FAERS Safety Report 10149272 (Version 1)
Quarter: 2014Q2

REPORT INFORMATION
  Report Type: Spontaneous
  Country: US (occurrence: None)
  Receive Date: 20140430
  Receipt Date: 20140430
  Transmission Date: 20141212
  Serious: Yes (Other)
  Sender: FDA-Public Use
  Company Number: 001722879A

PATIENT
  Age: 37 Year
  Sex: Female

DRUGS (5)
  1. MB ANTIOXIDANT DAY CREME SPF 20 [Suspect]
     Dosage: DERMAL
     Dates: start: 20140311, end: 20140318
  2. MB SKIN BRIGHTENING DECOLLETE+NECK TREATMENT [Suspect]
     Dosage: DERMAL
     Dates: start: 20140311, end: 20140318
  3. ZYRTEC [Concomitant]
  4. SINGULAIR [Concomitant]
  5. EPIPEN [Concomitant]

REACTIONS (1)
  - Anaphylactic reaction [None]
